FAERS Safety Report 8961386 (Version 1)
Quarter: 2012Q4

REPORT INFORMATION
  Report Type: Report from Study
  Country: FR (occurrence: FR)
  Receive Date: 20121212
  Receipt Date: 20121212
  Transmission Date: 20130627
  Serious: Yes (Death, Life-Threatening, Hospitalization, Other)
  Sender: FDA-Public Use
  Company Number: FR-BAXTER-2012BAX026085

PATIENT
  Age: 76 Year
  Sex: Female

DRUGS (8)
  1. ENDOXAN 2000 MG, LYOPHILISAT POUR SOLUTION INJECTABLE [Suspect]
     Indication: MANTLE CELL LYMPHOMA
     Route: 048
     Dates: start: 20080530, end: 20080928
  2. RITUXIMAB [Suspect]
     Indication: MANTLE CELL LYMPHOMA
     Dates: start: 20080602, end: 20081031
  3. RITUXIMAB [Suspect]
     Dates: start: 20080627
  4. RITUXIMAB [Suspect]
     Dates: start: 20080725
  5. RITUXIMAB [Suspect]
     Dates: start: 20080829
  6. RITUXIMAB [Suspect]
     Dates: start: 20080926
  7. RITUXIMAB [Suspect]
     Dates: start: 20081031
  8. FLUDARABINE [Suspect]
     Indication: MANTLE CELL LYMPHOMA
     Route: 048
     Dates: start: 20080530, end: 20080928

REACTIONS (5)
  - Septic shock [Fatal]
  - Bronchopulmonary aspergillosis [Unknown]
  - Cytomegalovirus infection [Unknown]
  - Fungal infection [Unknown]
  - Myelodysplastic syndrome [Unknown]
